FAERS Safety Report 5274931-7 (Version None)
Quarter: 2007Q1

REPORT INFORMATION
  Report Type: 
  Country: None (occurrence: None)
  Receive Date: 20061208
  Receipt Date: 20060420
  Transmission Date: 20070707
  Serious: No
  Sender: FDA-Public Use
  Company Number: 2006UW07084

PATIENT
  Age: 80 Year
  Weight: 79.378 kg

DRUGS (2)
  1. CRESTOR [Suspect]
     Indication: CORONARY ARTERY BYPASS
     Dosage: 5 MG PO
     Route: 048
  2. FLOMAX [Concomitant]

REACTIONS (1)
  - MUSCLE SPASMS [None]
